FAERS Safety Report 5465111-0 (Version None)
Quarter: 2007Q3

REPORT INFORMATION
  Report Type: 
  Country: None (occurrence: None)
  Receive Date: 20070820
  Receipt Date: 20070608
  Transmission Date: 20080115
  Serious: No
  Sender: FDA-Public Use
  Company Number: TPA2007A01280

PATIENT
  Age: 81 Year
  Sex: Male
  Weight: 79.3795 kg

DRUGS (6)
  1. ROZEREM [Suspect]
     Indication: INSOMNIA
     Dosage: 8 MG, QHS, PER ORAL
     Route: 048
     Dates: start: 20070604
  2. SPIRIVA [Concomitant]
  3. ADAVIR (FLUTICASONE PROPIONATE, SALMETEROL XINAFOATE) (INHALANT) [Concomitant]
  4. TRICOR [Concomitant]
  5. FLOMAX [Concomitant]
  6. AMBIEN [Concomitant]

REACTIONS (2)
  - INITIAL INSOMNIA [None]
  - MIDDLE INSOMNIA [None]
